FAERS Safety Report 7480620-0 (Version None)
Quarter: 2011Q2

REPORT INFORMATION
  Report Type: 
  Country: None (occurrence: None)
  Receive Date: 20110512
  Receipt Date: 20110512
  Transmission Date: 20111010
  Serious: Yes (Hospitalization)
  Sender: FDA-Public Use
  Company Number: None

PATIENT
  Age: 71 Year
  Sex: Female
  Weight: 63 kg

DRUGS (9)
  1. CIPRO [Suspect]
     Indication: MYELODYSPLASTIC SYNDROME
     Dosage: 500 MG BID
  2. LEXAPRO [Concomitant]
  3. VIDAZA [Suspect]
     Dosage: 75 MG WEEK ONE
  4. REVLIMID [Suspect]
     Dosage: 10 MG 21 DAYS
  5. FOSAMAX [Concomitant]
  6. ATENOLOL [Concomitant]
  7. VITAMIN B-12 [Concomitant]
  8. MULTI VIT DAILY [Concomitant]
  9. LEXAPRO [Concomitant]

REACTIONS (4)
  - PYREXIA [None]
  - RASH GENERALISED [None]
  - NEUTROPHIL COUNT DECREASED [None]
  - RASH ERYTHEMATOUS [None]
